FAERS Safety Report 9698089 (Version 2)
Quarter: 2016Q2

REPORT INFORMATION
  Report Type: Report from Study
  Country: US (occurrence: US)
  Receive Date: 20131120
  Receipt Date: 20160407
  Transmission Date: 20160815
  Serious: Yes (Other)
  Sender: FDA-Public Use
  Company Number: US-ROCHE-1306281

PATIENT
  Sex: Male

DRUGS (5)
  1. LUCENTIS [Suspect]
     Active Substance: RANIBIZUMAB
     Indication: BLINDNESS
     Dosage: LEFT EYE
     Route: 050
  2. INSULIN [Concomitant]
     Active Substance: INSULIN NOS
  3. LUCENTIS [Suspect]
     Active Substance: RANIBIZUMAB
     Indication: DIABETIC RETINAL OEDEMA
  4. LUCENTIS [Suspect]
     Active Substance: RANIBIZUMAB
     Indication: DIABETIC EYE DISEASE
  5. LUCENTIS [Suspect]
     Active Substance: RANIBIZUMAB
     Indication: EYE SWELLING
     Route: 050

REACTIONS (3)
  - No therapeutic response [Unknown]
  - Eye haemorrhage [Unknown]
  - Blindness [Unknown]
